FAERS Safety Report 7875922-X (Version None)
Quarter: 2011Q4

REPORT INFORMATION
  Report Type: 
  Country: None (occurrence: None)
  Receive Date: 20111031
  Receipt Date: 20111027
  Transmission Date: 20120403
  Serious: Yes (Death)
  Sender: FDA-Public Use
  Company Number: AU-ROCHE-1008077

PATIENT
  Sex: Male

DRUGS (2)
  1. LUCENTIS [Suspect]
     Route: 050
     Dates: start: 20111001
  2. LUCENTIS [Suspect]
     Indication: MACULAR DEGENERATION
     Dosage: REGIMEN 2
     Route: 050
     Dates: start: 20110501

REACTIONS (1)
  - PANCREATITIS [None]
